FAERS Safety Report 23433700 (Version 1)
Quarter: 2024Q1

REPORT INFORMATION
  Report Type: Spontaneous
  Country: TR (occurrence: TR)
  Receive Date: 20240123
  Receipt Date: 20240123
  Transmission Date: 20240410
  Serious: No
  Sender: FDA-Public Use
  Company Number: TR-ELI_LILLY_AND_COMPANY-TR202401007997

PATIENT
  Age: 57 Year
  Sex: Male

DRUGS (2)
  1. CIALIS [Suspect]
     Active Substance: TADALAFIL
     Indication: Product used for unknown indication
     Dosage: 100 MG, WEEKLY (1/W)
     Route: 065
     Dates: start: 2019
  2. CIALIS [Suspect]
     Active Substance: TADALAFIL
     Dosage: 100 MG, OTHER (TWICE PER WEEK)
     Route: 065

REACTIONS (5)
  - Visual impairment [Recovered/Resolved]
  - Feeling cold [Recovered/Resolved]
  - Pyrexia [Recovered/Resolved]
  - Overdose [Unknown]
  - Nasal congestion [Recovered/Resolved]
